FAERS Safety Report 20690920 (Version 1)
Quarter: 2022Q2

REPORT INFORMATION
  Report Type: Spontaneous
  Country: US (occurrence: US)
  Receive Date: 20220408
  Receipt Date: 20220408
  Transmission Date: 20220720
  Serious: Yes (Other)
  Sender: FDA-Public Use
  Company Number: US-MLMSERVICE-20220322-3444037-2

PATIENT
  Sex: Female

DRUGS (1)
  1. CONCERTA [Suspect]
     Active Substance: METHYLPHENIDATE HYDROCHLORIDE
     Indication: Depression
     Route: 048

REACTIONS (4)
  - Mast cell activation syndrome [Unknown]
  - Misophonia [Unknown]
  - Off label use [Unknown]
  - Product use in unapproved indication [Unknown]
